FAERS Safety Report 9787468 (Version 1)
Quarter: 2013Q4

REPORT INFORMATION
  Report Type: Spontaneous
  Country: GB (occurrence: GB)
  Receive Date: 20131230
  Receipt Date: 20131230
  Transmission Date: 20140711
  Serious: Yes (Hospitalization, Disabling)
  Sender: FDA-Public Use
  Company Number: GB-ROCHE-1322677

PATIENT
  Age: 61 Year
  Sex: Female

DRUGS (5)
  1. TRASTUZUMAB [Suspect]
     Indication: BREAST CANCER
     Route: 042
     Dates: start: 20121130, end: 20130628
  2. ANASTROZOLE [Concomitant]
     Indication: BREAST CANCER STAGE II
     Route: 065
     Dates: start: 201209
  3. GALANTAMINE [Concomitant]
  4. MEBEVERINE [Concomitant]
  5. SERTRALINE [Concomitant]

REACTIONS (3)
  - Hallucination [Unknown]
  - Paranoia [Unknown]
  - Psychiatric symptom [Not Recovered/Not Resolved]
